FAERS Safety Report 8516808 (Version 3)
Quarter: 2014Q1

REPORT INFORMATION
  Report Type: Spontaneous
  Country: US (occurrence: US)
  Receive Date: 20120417
  Receipt Date: 20140218
  Transmission Date: 20141002
  Serious: Yes (Hospitalization, Other)
  Sender: FDA-Public Use
  Company Number: US-BAYER-2012-034921

PATIENT
  Age: 47 Year
  Sex: Female
  Weight: 101.13 kg

DRUGS (13)
  1. YAZ [Suspect]
     Indication: CONTRACEPTION
     Dosage: UNK
     Dates: start: 200702, end: 2011
  2. YAZ [Suspect]
     Indication: CONTRACEPTION
  3. YASMIN [Suspect]
     Indication: CONTRACEPTION
     Dosage: UNK
     Dates: start: 200702, end: 2011
  4. YASMIN [Suspect]
     Indication: CONTRACEPTION
  5. OCELLA [Suspect]
     Indication: CONTRACEPTION
     Dosage: UNK
     Dates: start: 200702, end: 2011
  6. MULTIVITAMIN [Concomitant]
     Dosage: 1 DAILY
     Route: 048
     Dates: start: 20110810
  7. VITAMIN C [Concomitant]
     Dosage: 1 DAILY
     Route: 048
     Dates: start: 20110810
  8. FISH OIL [Concomitant]
     Dosage: 1 DAILY
     Route: 048
     Dates: start: 20110810
  9. IRON [Concomitant]
     Dosage: 1 DAILY
     Route: 048
  10. MOTRIN [Concomitant]
     Dosage: 400 MG, 4 X DAY
     Route: 048
  11. SLO-NIACIN [Concomitant]
     Dosage: UNK
     Route: 048
     Dates: start: 20110810
  12. CHONDROITIN W/GLUCOSAMINE [Concomitant]
     Dosage: UNK
     Route: 048
     Dates: start: 20110810
  13. VICODIN [Concomitant]
     Indication: PAIN
     Dosage: 5 MG EVERY 6 HOURS AS NEEDED
     Route: 048

REACTIONS (12)
  - Pulmonary embolism [None]
  - Cholecystitis acute [None]
  - Cholelithiasis [None]
  - Pancreatitis [None]
  - Bile duct obstruction [None]
  - Atelectasis [None]
  - Fibroma [None]
  - Pain [None]
  - Emotional distress [None]
  - Injury [None]
  - General physical health deterioration [None]
  - Anxiety [None]
